FAERS Safety Report 9914084 (Version 1)
Quarter: 2014Q1

REPORT INFORMATION
  Report Type: Spontaneous
  Country: US (occurrence: US)
  Receive Date: 20140220
  Receipt Date: 20140220
  Transmission Date: 20141002
  Serious: Yes (Other)
  Sender: FDA-Public Use
  Company Number: US-MYLANLABS-2013S1012994

PATIENT
  Sex: Female

DRUGS (1)
  1. ALPRAZOLAM TABLETS, USP [Suspect]
     Indication: ANXIETY

REACTIONS (3)
  - Drug ineffective [Unknown]
  - Anxiety [Unknown]
  - Drug dependence [Unknown]
